FAERS Safety Report 7793344-7 (Version None)
Quarter: 2011Q4

REPORT INFORMATION
  Report Type: 
  Country: None (occurrence: None)
  Receive Date: 20111003
  Receipt Date: 20110922
  Transmission Date: 20120403
  Serious: Yes (Other)
  Sender: FDA-Public Use
  Company Number: FR-ABBOTT-11P-056-0849287-00

PATIENT
  Sex: Female
  Weight: 58 kg

DRUGS (5)
  1. HUMIRA [Suspect]
     Indication: CROHN'S DISEASE
  2. HUMIRA [Suspect]
     Indication: ANKYLOSING SPONDYLITIS
  3. KETOPROFEN [Concomitant]
     Indication: ANKYLOSING SPONDYLITIS
     Dates: start: 20100501, end: 20100901
  4. HUMIRA [Suspect]
     Indication: RHEUMATOID ARTHRITIS
     Dates: start: 20100501
  5. KETOPROFEN [Concomitant]
     Indication: CROHN'S DISEASE

REACTIONS (2)
  - PSORIASIS [None]
  - HYPERKERATOSIS PALMARIS AND PLANTARIS [None]
